FAERS Safety Report 7831589 (Version 4)
Quarter: 2013Q1

REPORT INFORMATION
  Report Type: Spontaneous
  Country: US (occurrence: US)
  Receive Date: 20110228
  Receipt Date: 20130220
  Transmission Date: 20140127
  Serious: Yes (Death, Hospitalization)
  Sender: FDA-Public Use
  Company Number: US-ELI_LILLY_AND_COMPANY-US201012000538

PATIENT
  Sex: Female
  Weight: 83.9 kg

DRUGS (28)
  1. FORTEO [Suspect]
     Indication: OSTEOPOROSIS
     Dosage: 20 UG, DAILY (1/D)
     Route: 058
     Dates: start: 201011
  2. FORTEO [Suspect]
     Dosage: 20 UG, QD
     Route: 058
  3. METFORMIN [Concomitant]
     Dosage: 500 MG, 2/D
     Route: 065
  4. ECOTRIN [Concomitant]
     Dosage: 325 UNK, DAILY (1/D)
     Route: 065
  5. VERAPAMIL [Concomitant]
     Dosage: 80 MG, DAILY (1/D)
     Route: 065
  6. LIPITOR [Concomitant]
     Dosage: 10 MG, DAILY (1/D)
     Route: 065
  7. PANTOPRAZOLE [Concomitant]
     Dosage: 40 MG, DAILY (1/D)
     Route: 065
  8. FUROSEMIDE [Concomitant]
     Dosage: 40 MG, DAILY (1/D)
     Route: 065
  9. LEVOCETIRIZINE [Concomitant]
     Indication: HYPERSENSITIVITY
     Dosage: 5 MG, DAILY (1/D)
     Route: 065
  10. KLOR-CON M [Concomitant]
     Dosage: 10 UNK, 2/D
     Route: 065
  11. NITROGLYCERIN [Concomitant]
     Dosage: 4 MG, AS NEEDED
     Route: 065
  12. NASONEX [Concomitant]
     Dosage: UNK, AS NEEDED
     Route: 065
  13. ALAWAY [Concomitant]
     Dosage: UNK, AS NEEDED
     Route: 065
  14. SOOTHE XP [Concomitant]
     Dosage: UNK, AS NEEDED
     Route: 065
  15. BENZONATATE [Concomitant]
     Dosage: 100 MG, AS NEEDED
     Route: 065
  16. B12 [Concomitant]
     Dosage: UNK, MONTHLY (1/M)
     Route: 065
  17. ADVAIR [Concomitant]
     Dosage: 250/50 UNK, 2/D
     Route: 065
  18. PROVENTIL /USA/ [Concomitant]
     Dosage: UNK, AS NEEDED
     Route: 065
  19. PROTONIX [Concomitant]
  20. ECONAZOLE NITRATE [Concomitant]
  21. LEVOTHROID [Concomitant]
  22. LASIX [Concomitant]
  23. POTASSIUM [Concomitant]
  24. PRAZOSIN HYDROCHLORIDE [Concomitant]
  25. CALCIUM [Concomitant]
  26. VITAMIN D [Concomitant]
  27. TESSALON [Concomitant]
  28. XYZAL [Concomitant]

REACTIONS (7)
  - Pulmonary embolism [Fatal]
  - Septic shock [Fatal]
  - Diabetes mellitus [Unknown]
  - Hypoglycaemia [Recovered/Resolved]
  - Bronchitis chronic [Unknown]
  - Heart valve incompetence [Not Recovered/Not Resolved]
  - Muscle spasms [Unknown]
